FAERS Safety Report 7408860-7 (Version None)
Quarter: 2011Q2

REPORT INFORMATION
  Report Type: 
  Country: None (occurrence: None)
  Receive Date: 20110412
  Receipt Date: 20110404
  Transmission Date: 20111010
  Serious: Yes (Other)
  Sender: FDA-Public Use
  Company Number: US-TEVA-274549USA

PATIENT
  Sex: Female

DRUGS (1)
  1. PHENTERMINE HCL [Suspect]

REACTIONS (1)
  - MYOCARDIAL INFARCTION [None]
